FAERS Safety Report 4428803-8 (Version None)
Quarter: 2004Q3

REPORT INFORMATION
  Report Type: 
  Country: None (occurrence: None)
  Receive Date: 20040816
  Receipt Date: 20040802
  Transmission Date: 20050211
  Serious: No
  Sender: FDA-Public Use
  Company Number: 0104-1791

PATIENT
  Age: 86 Year
  Sex: Male
  Weight: 71.6683 kg

DRUGS (8)
  1. ADVICOR [Suspect]
     Indication: LIPIDS INCREASED
     Dosage: 2 TABLET (S) QHS PO
     Route: 048
     Dates: start: 20040316, end: 20040404
  2. LANOXIN [Concomitant]
  3. FUROSEMIDE [Concomitant]
  4. COREG [Concomitant]
  5. CAPTOPRIL [Concomitant]
  6. ALLOPURINOL [Concomitant]
  7. ACIPHEX [Concomitant]
  8. DARVOCET-N 100 [Concomitant]

REACTIONS (12)
  - ABDOMINAL DISCOMFORT [None]
  - ALANINE AMINOTRANSFERASE INCREASED [None]
  - ANOREXIA [None]
  - ASPARTATE AMINOTRANSFERASE INCREASED [None]
  - ATAXIA [None]
  - BLOOD ALKALINE PHOSPHATASE INCREASED [None]
  - CHOLELITHIASIS [None]
  - ERUCTATION [None]
  - FATIGUE [None]
  - GALLBLADDER DISORDER [None]
  - LIVER FUNCTION TEST ABNORMAL [None]
  - ORAL PAIN [None]
